FAERS Safety Report 9368218 (Version 2)
Quarter: 2013Q3

REPORT INFORMATION
  Report Type: Report from Study
  Country: AU (occurrence: AU)
  Receive Date: 20130625
  Receipt Date: 20130918
  Transmission Date: 20140515
  Serious: Yes (Hospitalization)
  Sender: FDA-Public Use
  Company Number: AU-ROCHE-1185620

PATIENT
  Age: 56 Year
  Sex: Female
  Weight: 50.4 kg

DRUGS (16)
  1. BLINDED GDC-0941 (PI3K INHIBITOR) [Suspect]
     Indication: NON-SMALL CELL LUNG CANCER
     Route: 048
     Dates: start: 20121130
  2. GDC-0941 (PI3K INHIBITOR) [Suspect]
     Indication: NON-SMALL CELL LUNG CANCER
     Route: 048
     Dates: start: 20130725
  3. BEVACIZUMAB [Suspect]
     Indication: NON-SMALL CELL LUNG CANCER
     Dosage: LAST DOSE TAKEN: 828 MG, DATE OF LAST DOSE PRIOR TO SAE: 08/FEB/2013
     Route: 042
     Dates: start: 20121130
  4. PACLITAXEL [Suspect]
     Indication: NON-SMALL CELL LUNG CANCER
     Dosage: LAST DOSE TAKEN: 235 MG, DATE OF LAST DOSE PRIOR TO SAE: 08/FEB/2013
     Route: 042
     Dates: start: 20121130
  5. CARBOPLATIN [Suspect]
     Indication: NON-SMALL CELL LUNG CANCER
     Dosage: LAST DOSE TAKEN: 352 MG, DATE OF LAST DOSE PRIOR TO SAE:08/FEB/2013
     Route: 042
     Dates: start: 20121130
  6. PARACETAMOL [Concomitant]
     Indication: ARTHRALGIA
     Route: 048
     Dates: start: 20121207
  7. DEXAMETHASONE [Concomitant]
     Indication: ANAPHYLAXIS PROPHYLAXIS
     Route: 048
     Dates: start: 20130117, end: 20130118
  8. DEXAMETHASONE [Concomitant]
     Route: 048
     Dates: start: 20130119, end: 20130120
  9. DEXAMETHASONE [Concomitant]
     Route: 048
     Dates: start: 20130121, end: 20130122
  10. LORATADINE [Concomitant]
     Route: 048
     Dates: start: 20130118, end: 20130118
  11. ALOXI [Concomitant]
     Indication: NAUSEA
     Route: 042
     Dates: start: 20130118, end: 20130118
  12. APREPITANT [Concomitant]
     Indication: NAUSEA
     Route: 048
     Dates: start: 20130118, end: 20130118
  13. APREPITANT [Concomitant]
     Route: 048
     Dates: start: 20130119, end: 20130120
  14. TEMAZEPAM [Concomitant]
     Indication: INSOMNIA
     Route: 048
     Dates: start: 20130128, end: 20130128
  15. AUGMENTIN DUO FORTE [Concomitant]
     Indication: COUGH
     Route: 048
     Dates: start: 20130206
  16. BISOLVON [Concomitant]
     Indication: COUGH
     Route: 048
     Dates: start: 20130206

REACTIONS (3)
  - Febrile neutropenia [Recovered/Resolved]
  - Anaemia [Recovered/Resolved]
  - Pyrexia [Recovered/Resolved]
